FAERS Safety Report 12827694 (Version 1)
Quarter: 2016Q4

REPORT INFORMATION
  Report Type: Report from Study
  Country: US (occurrence: US)
  Receive Date: 20161007
  Receipt Date: 20161007
  Transmission Date: 20170207
  Serious: Yes (Death, Other)
  Sender: FDA-Public Use
  Company Number: US-PFIZER INC-2016414881

PATIENT

DRUGS (1)
  1. CLINDAMYCIN PHOSPHATE. [Suspect]
     Active Substance: CLINDAMYCIN PHOSPHATE
     Indication: ENDOCARDITIS STAPHYLOCOCCAL
     Dosage: 800 MG, 3X/DAY
     Route: 051

REACTIONS (1)
  - Drug ineffective [Fatal]
